FAERS Safety Report 5339944-5 (Version None)
Quarter: 2007Q2

REPORT INFORMATION
  Report Type: 
  Country: None (occurrence: None)
  Receive Date: 20070529
  Receipt Date: 20070514
  Transmission Date: 20071010
  Serious: Yes (Hospitalization)
  Sender: FDA-Public Use
  Company Number: B0470835A

PATIENT
  Age: 38 Year
  Sex: Female

DRUGS (4)
  1. PAROXETINE HCL [Suspect]
  2. TEMAZEPAM [Concomitant]
  3. DIPHENHYDRAMINE HCL [Concomitant]
  4. ETHANOL [Concomitant]

REACTIONS (8)
  - BLOOD ALCOHOL INCREASED [None]
  - BLOOD GLUCOSE INCREASED [None]
  - ELECTROCARDIOGRAM QT PROLONGED [None]
  - GRAND MAL CONVULSION [None]
  - HYPERTENSION [None]
  - MULTIPLE DRUG OVERDOSE INTENTIONAL [None]
  - OBSTRUCTIVE AIRWAYS DISORDER [None]
  - SEROTONIN SYNDROME [None]
